FAERS Safety Report 25078843 (Version 2)
Quarter: 2025Q3

REPORT INFORMATION
  Report Type: Spontaneous
  Country: US (occurrence: US)
  Receive Date: 20250314
  Receipt Date: 20250911
  Transmission Date: 20251021
  Serious: Yes (Other)
  Sender: COOPERSURGICAL
  Company Number: US-COOPERSURGICAL, INC.-2025CPS001804

PATIENT
  Sex: Female
  Weight: 90.703 kg

DRUGS (1)
  1. PARAGARD T 380A [Suspect]
     Active Substance: COPPER
     Route: 015
     Dates: start: 20160217

REACTIONS (21)
  - Surgery [Recovered/Resolved]
  - Device breakage [Not Recovered/Not Resolved]
  - Foreign body in reproductive tract [Not Recovered/Not Resolved]
  - Complication of device removal [Not Recovered/Not Resolved]
  - Embedded device [Not Recovered/Not Resolved]
  - Endometritis [Unknown]
  - Emotional disorder [Unknown]
  - Stress urinary incontinence [Unknown]
  - Vulvovaginal discomfort [Unknown]
  - Sensation of foreign body [Unknown]
  - Device issue [Recovered/Resolved]
  - Device material issue [Recovered/Resolved]
  - Menstruation irregular [Unknown]
  - Heavy menstrual bleeding [Unknown]
  - Device dislocation [Recovered/Resolved]
  - Pelvic pain [Unknown]
  - Vaginal discharge [Unknown]
  - Abnormal uterine bleeding [Unknown]
  - Pain [Unknown]
  - Muscle spasms [Unknown]
  - Intermenstrual bleeding [Unknown]

NARRATIVE: CASE EVENT DATE: 20200101
